FAERS Safety Report 4377324-X (Version None)
Quarter: 2004Q2

REPORT INFORMATION
  Report Type: 
  Country: None (occurrence: None)
  Receive Date: 20040614
  Receipt Date: 20040614
  Transmission Date: 20050107
  Serious: Yes (Hospitalization)
  Sender: FDA-Public Use
  Company Number: None

PATIENT
  Age: 76 Year
  Sex: Male

DRUGS (2)
  1. PLAVIX [Suspect]
     Dosage: 75 MG QD PO
     Route: 048
  2. ASPIRIN [Suspect]
     Dosage: 81 MG QD PO
     Route: 048

REACTIONS (3)
  - ASTHENIA [None]
  - FALL [None]
  - SUBDURAL HAEMATOMA [None]
